FAERS Safety Report 15466575 (Version 1)
Quarter: 2018Q4

REPORT INFORMATION
  Report Type: Spontaneous
  Country: US (occurrence: US)
  Receive Date: 20181004
  Receipt Date: 20181004
  Transmission Date: 20190204
  Serious: No
  Sender: FDA-Public Use
  Company Number: US-LUPIN PHARMACEUTICALS INC.-2018-06618

PATIENT
  Age: 69 Year
  Sex: Female
  Weight: 65.76 kg

DRUGS (1)
  1. AMLODIPINE BESYLATE TABLETS USP, 5 MG [Suspect]
     Active Substance: AMLODIPINE BESYLATE
     Indication: HYPERTENSION
     Dosage: 5 MG, QD
     Route: 048
     Dates: start: 201806

REACTIONS (2)
  - Bronchitis [Not Recovered/Not Resolved]
  - Respiratory symptom [Not Recovered/Not Resolved]

NARRATIVE: CASE EVENT DATE: 201806
